FAERS Safety Report 10606646 (Version 1)
Quarter: 2014Q4

REPORT INFORMATION
  Report Type: Spontaneous
  Country: US (occurrence: None)
  Receive Date: 20141124
  Receipt Date: 20141124
  Transmission Date: 20150529
  Serious: Yes (Disabling)
  Sender: FDA-Public Use
  Company Number: None

PATIENT
  Age: 59 Year
  Sex: Female
  Weight: 64.41 kg

DRUGS (1)
  1. CIMZIA [Suspect]
     Active Substance: CERTOLIZUMAB PEGOL
     Indication: RHEUMATOID ARTHRITIS
     Dosage: INJECTIONS MONTHLY?INJECTION INTO STOMACH
     Dates: start: 20140708, end: 20140722

REACTIONS (3)
  - Candida infection [None]
  - Anosmia [None]
  - Ageusia [None]

NARRATIVE: CASE EVENT DATE: 20140722
